FAERS Safety Report 10664101 (Version 1)
Quarter: 2014Q4

REPORT INFORMATION
  Report Type: Spontaneous
  Country: US (occurrence: None)
  Receive Date: 20141217
  Receipt Date: 20141217
  Transmission Date: 20150529
  Serious: Yes (Hospitalization)
  Sender: FDA-Public Use
  Company Number: INT_00539_2014

PATIENT
  Age: 39 Year
  Sex: Male

DRUGS (2)
  1. GEMCITABINE [Suspect]
     Active Substance: GEMCITABINE\GEMCITABINE HYDROCHLORIDE
     Indication: URETHRAL CANCER METASTATIC
     Dosage: ON DAYS 1, 8, AND 15 IN A 28-DAY CYCLE, AT LEAST 10 CYCLES
  2. CISPLATIN (HQ SPECIALTY) [Suspect]
     Active Substance: CISPLATIN
     Indication: URETHRAL CANCER METASTATIC
     Dosage: DAY 1 OF A 28 DAY CYCLE, 10 CYCLES)

REACTIONS (5)
  - Urinary hesitation [None]
  - Lymphadenopathy [None]
  - Urethral cancer metastatic [None]
  - Pulmonary mass [None]
  - Deep vein thrombosis [None]
